FAERS Safety Report 23991212 (Version 2)
Quarter: 2024Q3

REPORT INFORMATION
  Report Type: Spontaneous
  Country: BG (occurrence: BG)
  Receive Date: 20240619
  Receipt Date: 20240705
  Transmission Date: 20241017
  Serious: Yes (Hospitalization, Other)
  Sender: TEVA
  Company Number: BG-ASTELLAS-2024EU005737

PATIENT
  Sex: Female

DRUGS (6)
  1. BENDAMUSTINE [Suspect]
     Active Substance: BENDAMUSTINE
     Indication: Lymphoplasmacytoid lymphoma/immunocytoma stage IV
     Dosage: UNK, CYCLIC
     Route: 042
     Dates: start: 202211, end: 202301
  2. BENDAMUSTINE [Suspect]
     Active Substance: BENDAMUSTINE
     Indication: Lymphoplasmacytoid lymphoma/immunocytoma stage IV
     Dosage: 100 MG, CYCLIC (2 COURSES, DAYS 2 AND 3)
     Route: 042
  3. BENDAMUSTINE [Suspect]
     Active Substance: BENDAMUSTINE
     Indication: Lymphoplasmacytoid lymphoma/immunocytoma stage IV
     Dosage: UNK, CYCLIC (ONE COURSE)
     Route: 042
  4. RITUXIMAB [Suspect]
     Active Substance: RITUXIMAB
     Indication: Lymphoplasmacytoid lymphoma/immunocytoma stage IV
     Dosage: UNK UNK, CYCLIC (1 COURSE)
     Route: 065
  5. RITUXIMAB [Suspect]
     Active Substance: RITUXIMAB
     Indication: Lymphoplasmacytoid lymphoma/immunocytoma stage IV
     Dosage: UNK UNK, CYCLIC (THREE COURSES)
     Route: 065
     Dates: start: 202211, end: 202301
  6. RITUXIMAB [Suspect]
     Active Substance: RITUXIMAB
     Indication: Lymphoplasmacytoid lymphoma/immunocytoma stage IV
     Dosage: 600 MG, CYCLIC (2 COURSES, AT DAY 1)
     Route: 065

REACTIONS (2)
  - Renal failure [Unknown]
  - Anuria [Unknown]
